FAERS Safety Report 4304465-5 (Version None)
Quarter: 2004Q1

REPORT INFORMATION
  Report Type: 
  Country: None (occurrence: None)
  Receive Date: 20040225
  Receipt Date: 20040225
  Transmission Date: 20041129
  Serious: Yes (Hospitalization)
  Sender: FDA-Public Use
  Company Number: None

PATIENT
  Age: 89 Year
  Sex: Male

DRUGS (4)
  1. WARFARIN SODIUM [Suspect]
     Indication: DEEP VEIN THROMBOSIS
     Dosage: PER INR
     Dates: start: 19990101
  2. ENOXAPARIN SODIUM [Suspect]
     Dosage: 60 MG SC BID
     Route: 058
     Dates: start: 20030404
  3. SINEMET [Concomitant]
  4. CALCIUM [Concomitant]

REACTIONS (2)
  - GASTROINTESTINAL HAEMORRHAGE [None]
  - PNEUMONIA [None]
